FAERS Safety Report 18498736 (Version 3)
Quarter: 2021Q3

REPORT INFORMATION
  Report Type: Report from Study
  Country: US (occurrence: US)
  Receive Date: 20201112
  Receipt Date: 20210811
  Transmission Date: 20211014
  Serious: Yes (Hospitalization, Other)
  Sender: FDA-Public Use
  Company Number: US-TAKEDA-US202034325

PATIENT
  Sex: Female

DRUGS (1)
  1. CUVITRU [Suspect]
     Active Substance: HUMAN IMMUNOGLOBULIN G
     Indication: PRIMARY IMMUNODEFICIENCY SYNDROME
     Route: 065

REACTIONS (8)
  - Pelvic neoplasm [Unknown]
  - Illness [Unknown]
  - Infusion site erythema [Unknown]
  - Infusion site discolouration [Unknown]
  - COVID-19 [Unknown]
  - Germ cell cancer [Unknown]
  - Infusion site reaction [Unknown]
  - Infusion site pain [Unknown]
